FAERS Safety Report 7167871-X (Version None)
Quarter: 2010Q4

REPORT INFORMATION
  Report Type: 
  Country: None (occurrence: None)
  Receive Date: 20101216
  Receipt Date: 20101213
  Transmission Date: 20110411
  Serious: Yes (Hospitalization, Other)
  Sender: FDA-Public Use
  Company Number: BR-ELI_LILLY_AND_COMPANY-BR201010006902

PATIENT
  Sex: Male
  Weight: 90 kg

DRUGS (11)
  1. BYETTA [Suspect]
     Indication: DIABETES MELLITUS
     Dosage: 5 UG, DAILY (1/D)
     Route: 058
     Dates: start: 20100501
  2. BYETTA [Suspect]
     Dosage: 10 UG, DAILY (1/D)
     Route: 058
  3. METFORMIN HYDROCHLORIDE [Concomitant]
     Indication: DIABETES MELLITUS
     Dosage: 1 MG, DAILY (1/D)
  4. PLAVIX [Concomitant]
     Indication: CARDIAC DISORDER
     Dosage: 75 MG, DAILY (1/D)
  5. MICARDIS [Concomitant]
     Indication: CARDIAC DISORDER
     Dosage: UNK, DAILY (1/D)
  6. LIPITOR [Concomitant]
     Indication: CARDIAC DISORDER
     Dosage: 6.25 UNK, DAILY (1/D)
  7. ZETIA [Concomitant]
     Dosage: 80 MG, DAILY (1/D)
     Route: 065
  8. ASPIRIN [Concomitant]
     Indication: DYSPEPSIA
     Dosage: 300 MG, DAILY (1/D)
     Route: 065
  9. ZOLOFT [Concomitant]
     Indication: DEPRESSION
     Dosage: 50 MG, DAILY (1/D)
     Route: 065
  10. WELLBUTRIN SR [Concomitant]
     Indication: DEPRESSION
     Dosage: 150 MG, DAILY (1/D)
     Route: 065
  11. CARDURA [Concomitant]
     Indication: PROSTATIC DISORDER
     Dosage: UNK, DAILY (1/D)

REACTIONS (7)
  - BLOOD GLUCOSE INCREASED [None]
  - MALAISE [None]
  - MYOCARDIAL ISCHAEMIA [None]
  - NAUSEA [None]
  - SYNCOPE [None]
  - VENOUS OCCLUSION [None]
  - VOMITING [None]
